FAERS Safety Report 11652411 (Version 3)
Quarter: 2017Q1

REPORT INFORMATION
  Report Type: Spontaneous
  Country: US (occurrence: US)
  Receive Date: 20151022
  Receipt Date: 20170221
  Transmission Date: 20170428
  Serious: Yes (Other)
  Sender: FDA-Public Use
  Company Number: US-JNJFOC-20150823141

PATIENT
  Sex: Male

DRUGS (62)
  1. RISPERDAL [Suspect]
     Active Substance: RISPERIDONE
     Indication: OBESITY
     Dosage: 0.5 MG AM AND 1.0 MG PM
     Route: 048
     Dates: start: 201204, end: 201306
  2. RISPERDAL [Suspect]
     Active Substance: RISPERIDONE
     Indication: INTELLECTUAL DISABILITY
     Route: 048
     Dates: start: 200208, end: 201002
  3. RISPERDAL [Suspect]
     Active Substance: RISPERIDONE
     Indication: DISTURBANCE IN ATTENTION
     Route: 048
     Dates: start: 200208, end: 201002
  4. RISPERDAL [Suspect]
     Active Substance: RISPERIDONE
     Indication: IMPULSIVE BEHAVIOUR
     Route: 048
     Dates: start: 200208, end: 201002
  5. RISPERDAL [Suspect]
     Active Substance: RISPERIDONE
     Indication: PSYCHOMOTOR HYPERACTIVITY
     Route: 048
     Dates: start: 201310, end: 20141104
  6. RISPERDAL [Suspect]
     Active Substance: RISPERIDONE
     Indication: ANXIETY
     Route: 048
     Dates: start: 201307, end: 201309
  7. RISPERDAL [Suspect]
     Active Substance: RISPERIDONE
     Indication: ATTENTION DEFICIT/HYPERACTIVITY DISORDER
     Dosage: 0.5 MG AM AND 1.0 MG PM
     Route: 048
     Dates: start: 201204, end: 201306
  8. RISPERDAL [Suspect]
     Active Substance: RISPERIDONE
     Indication: ATTENTION DEFICIT/HYPERACTIVITY DISORDER
     Dosage: 0.5 MG AM 0.75 MG PM
     Route: 048
     Dates: start: 201003, end: 201203
  9. RISPERDAL [Suspect]
     Active Substance: RISPERIDONE
     Indication: OBESITY
     Dosage: 0.5 MG AM 0.75 MG PM
     Route: 048
     Dates: start: 201003, end: 201203
  10. RISPERDAL [Suspect]
     Active Substance: RISPERIDONE
     Indication: INTELLECTUAL DISABILITY
     Dosage: 0.5 MG AM AND 1.0 MG PM
     Route: 048
     Dates: start: 201204, end: 201306
  11. RISPERDAL [Suspect]
     Active Substance: RISPERIDONE
     Indication: DISTURBANCE IN ATTENTION
     Dosage: 0.5 MG AM AND 1.0 MG PM
     Route: 048
     Dates: start: 201204, end: 201306
  12. RISPERDAL [Suspect]
     Active Substance: RISPERIDONE
     Indication: IMPULSIVE BEHAVIOUR
     Dosage: 0.5 MG AM 0.75 MG PM
     Route: 048
     Dates: start: 201003, end: 201203
  13. RISPERDAL [Suspect]
     Active Substance: RISPERIDONE
     Indication: PSYCHOMOTOR HYPERACTIVITY
     Dosage: 0.5 MG AM AND 1.0 MG PM
     Route: 048
     Dates: start: 201204, end: 201306
  14. RISPERDAL [Suspect]
     Active Substance: RISPERIDONE
     Indication: ANXIETY
     Dosage: 0.5 MG AM 0.75 MG PM
     Route: 048
     Dates: start: 201003, end: 201203
  15. RISPERDAL [Suspect]
     Active Substance: RISPERIDONE
     Indication: INTELLECTUAL DISABILITY
     Route: 048
     Dates: start: 201310, end: 20141104
  16. RISPERDAL [Suspect]
     Active Substance: RISPERIDONE
     Indication: IRRITABILITY
     Route: 048
     Dates: start: 201310, end: 20141104
  17. RISPERDAL [Suspect]
     Active Substance: RISPERIDONE
     Indication: IRRITABILITY
     Dosage: 1.0 MG AM/PM INCREASED TO 1.0 MG TID AND FURTHER INCREASED TO 2 MG AM/PM
     Route: 048
     Dates: start: 20131114, end: 2014
  18. RISPERDAL [Suspect]
     Active Substance: RISPERIDONE
     Indication: PSYCHOMOTOR HYPERACTIVITY
     Route: 048
     Dates: start: 201307, end: 201309
  19. RISPERDAL [Suspect]
     Active Substance: RISPERIDONE
     Indication: PSYCHOMOTOR HYPERACTIVITY
     Dosage: 1.0 MG AM/PM INCREASED TO 1.0 MG TID AND FURTHER INCREASED TO 2 MG AM/PM
     Route: 048
     Dates: start: 20131114, end: 2014
  20. RISPERDAL [Suspect]
     Active Substance: RISPERIDONE
     Indication: ANXIETY
     Dosage: 0.5 MG AM AND 1.0 MG PM
     Route: 048
     Dates: start: 201204, end: 201306
  21. RISPERDAL [Suspect]
     Active Substance: RISPERIDONE
     Indication: AGGRESSION
     Dosage: 0.5 MG AM 0.75 MG PM
     Route: 048
     Dates: start: 201003, end: 201203
  22. RISPERDAL [Suspect]
     Active Substance: RISPERIDONE
     Indication: AGGRESSION
     Dosage: 1.0 MG AM/PM INCREASED TO 1.0 MG TID AND FURTHER INCREASED TO 2 MG AM/PM
     Route: 048
     Dates: start: 20131114, end: 2014
  23. RISPERDAL [Suspect]
     Active Substance: RISPERIDONE
     Indication: ADJUSTMENT DISORDER
     Route: 048
     Dates: start: 201310, end: 20141104
  24. RISPERDAL [Suspect]
     Active Substance: RISPERIDONE
     Indication: ADJUSTMENT DISORDER
     Dosage: 0.5 MG AM AND 1.0 MG PM
     Route: 048
     Dates: start: 201204, end: 201306
  25. RISPERDAL [Suspect]
     Active Substance: RISPERIDONE
     Indication: ATTENTION DEFICIT/HYPERACTIVITY DISORDER
     Dosage: 1.0 MG AM/PM INCREASED TO 1.0 MG TID AND FURTHER INCREASED TO 2 MG AM/PM
     Route: 048
     Dates: start: 20131114, end: 2014
  26. RISPERDAL [Suspect]
     Active Substance: RISPERIDONE
     Indication: IRRITABILITY
     Route: 048
     Dates: start: 201307, end: 201309
  27. RISPERDAL [Suspect]
     Active Substance: RISPERIDONE
     Indication: DISTURBANCE IN ATTENTION
     Dosage: 1.0 MG AM/PM INCREASED TO 1.0 MG TID AND FURTHER INCREASED TO 2 MG AM/PM
     Route: 048
     Dates: start: 20131114, end: 2014
  28. RISPERDAL [Suspect]
     Active Substance: RISPERIDONE
     Indication: DISTURBANCE IN ATTENTION
     Dosage: 0.5 MG AM 0.75 MG PM
     Route: 048
     Dates: start: 201003, end: 201203
  29. RISPERDAL [Suspect]
     Active Substance: RISPERIDONE
     Indication: AGGRESSION
     Route: 048
     Dates: start: 200208, end: 201002
  30. RISPERDAL [Suspect]
     Active Substance: RISPERIDONE
     Indication: ADJUSTMENT DISORDER
     Dosage: 1.0 MG AM/PM INCREASED TO 1.0 MG TID AND FURTHER INCREASED TO 2 MG AM/PM
     Route: 048
     Dates: start: 20131114, end: 2014
  31. RISPERDAL [Suspect]
     Active Substance: RISPERIDONE
     Indication: INTELLECTUAL DISABILITY
     Route: 048
     Dates: start: 201307, end: 201309
  32. RISPERDAL [Suspect]
     Active Substance: RISPERIDONE
     Indication: INTELLECTUAL DISABILITY
     Dosage: 0.5 MG AM 0.75 MG PM
     Route: 048
     Dates: start: 201003, end: 201203
  33. RISPERDAL [Suspect]
     Active Substance: RISPERIDONE
     Indication: INTELLECTUAL DISABILITY
     Dosage: 1.0 MG AM/PM INCREASED TO 1.0 MG TID AND FURTHER INCREASED TO 2 MG AM/PM
     Route: 048
     Dates: start: 20131114, end: 2014
  34. RISPERDAL [Suspect]
     Active Substance: RISPERIDONE
     Indication: IRRITABILITY
     Dosage: 0.5 MG AM 0.75 MG PM
     Route: 048
     Dates: start: 201003, end: 201203
  35. RISPERDAL [Suspect]
     Active Substance: RISPERIDONE
     Indication: DISTURBANCE IN ATTENTION
     Route: 048
     Dates: start: 201307, end: 201309
  36. RISPERDAL [Suspect]
     Active Substance: RISPERIDONE
     Indication: IMPULSIVE BEHAVIOUR
     Route: 048
     Dates: start: 201310, end: 20141104
  37. RISPERDAL [Suspect]
     Active Substance: RISPERIDONE
     Indication: AGGRESSION
     Route: 048
     Dates: start: 201307, end: 201309
  38. RISPERDAL [Suspect]
     Active Substance: RISPERIDONE
     Indication: AGGRESSION
     Dosage: 0.5 MG AM AND 1.0 MG PM
     Route: 048
     Dates: start: 201204, end: 201306
  39. RISPERDAL [Suspect]
     Active Substance: RISPERIDONE
     Indication: ADJUSTMENT DISORDER
     Route: 048
     Dates: start: 201307, end: 201309
  40. RISPERDAL [Suspect]
     Active Substance: RISPERIDONE
     Indication: OBESITY
     Dosage: 1.0 MG AM/PM INCREASED TO 1.0 MG TID AND FURTHER INCREASED TO 2 MG AM/PM
     Route: 048
     Dates: start: 20131114, end: 2014
  41. RISPERDAL [Suspect]
     Active Substance: RISPERIDONE
     Indication: OBESITY
     Route: 048
     Dates: start: 201307, end: 201309
  42. RISPERDAL [Suspect]
     Active Substance: RISPERIDONE
     Indication: IRRITABILITY
     Dosage: 0.5 MG AM AND 1.0 MG PM
     Route: 048
     Dates: start: 201204, end: 201306
  43. RISPERDAL [Suspect]
     Active Substance: RISPERIDONE
     Indication: IMPULSIVE BEHAVIOUR
     Route: 048
     Dates: start: 201307, end: 201309
  44. RISPERDAL [Suspect]
     Active Substance: RISPERIDONE
     Indication: IMPULSIVE BEHAVIOUR
     Dosage: 0.5 MG AM AND 1.0 MG PM
     Route: 048
     Dates: start: 201204, end: 201306
  45. RISPERDAL [Suspect]
     Active Substance: RISPERIDONE
     Indication: PSYCHOMOTOR HYPERACTIVITY
     Dosage: 0.5 MG AM 0.75 MG PM
     Route: 048
     Dates: start: 201003, end: 201203
  46. RISPERDAL [Suspect]
     Active Substance: RISPERIDONE
     Indication: ANXIETY
     Route: 048
     Dates: start: 201310, end: 20141104
  47. RISPERDAL [Suspect]
     Active Substance: RISPERIDONE
     Indication: ADJUSTMENT DISORDER
     Dosage: 0.5 MG AM 0.75 MG PM
     Route: 048
     Dates: start: 201003, end: 201203
  48. RISPERDAL [Suspect]
     Active Substance: RISPERIDONE
     Indication: ADJUSTMENT DISORDER
     Route: 048
     Dates: start: 200208, end: 201002
  49. RISPERDAL [Suspect]
     Active Substance: RISPERIDONE
     Indication: ATTENTION DEFICIT/HYPERACTIVITY DISORDER
     Route: 048
     Dates: start: 201307, end: 201309
  50. RISPERDAL [Suspect]
     Active Substance: RISPERIDONE
     Indication: ATTENTION DEFICIT/HYPERACTIVITY DISORDER
     Route: 048
     Dates: start: 201310, end: 20141104
  51. RISPERIDONE. [Suspect]
     Active Substance: RISPERIDONE
     Indication: PRODUCT USED FOR UNKNOWN INDICATION
     Route: 048
  52. RISPERDAL [Suspect]
     Active Substance: RISPERIDONE
     Indication: OBESITY
     Route: 048
     Dates: start: 200208, end: 201002
  53. RISPERDAL [Suspect]
     Active Substance: RISPERIDONE
     Indication: IRRITABILITY
     Route: 048
     Dates: start: 200208, end: 201002
  54. RISPERDAL [Suspect]
     Active Substance: RISPERIDONE
     Indication: PSYCHOMOTOR HYPERACTIVITY
     Route: 048
     Dates: start: 200208, end: 201002
  55. RISPERDAL [Suspect]
     Active Substance: RISPERIDONE
     Indication: ANXIETY
     Route: 048
     Dates: start: 200208, end: 201002
  56. RISPERDAL [Suspect]
     Active Substance: RISPERIDONE
     Indication: ANXIETY
     Dosage: 1.0 MG AM/PM INCREASED TO 1.0 MG TID AND FURTHER INCREASED TO 2 MG AM/PM
     Route: 048
     Dates: start: 20131114, end: 2014
  57. RISPERDAL [Suspect]
     Active Substance: RISPERIDONE
     Indication: ATTENTION DEFICIT/HYPERACTIVITY DISORDER
     Route: 048
     Dates: start: 200208, end: 201002
  58. RISPERIDONE. [Suspect]
     Active Substance: RISPERIDONE
     Indication: PRODUCT USED FOR UNKNOWN INDICATION
     Route: 048
  59. RISPERDAL [Suspect]
     Active Substance: RISPERIDONE
     Indication: OBESITY
     Route: 048
     Dates: start: 201310, end: 20141104
  60. RISPERDAL [Suspect]
     Active Substance: RISPERIDONE
     Indication: DISTURBANCE IN ATTENTION
     Route: 048
     Dates: start: 201310, end: 20141104
  61. RISPERDAL [Suspect]
     Active Substance: RISPERIDONE
     Indication: IMPULSIVE BEHAVIOUR
     Dosage: 1.0 MG AM/PM INCREASED TO 1.0 MG TID AND FURTHER INCREASED TO 2 MG AM/PM
     Route: 048
     Dates: start: 20131114, end: 2014
  62. RISPERDAL [Suspect]
     Active Substance: RISPERIDONE
     Indication: AGGRESSION
     Route: 048
     Dates: start: 201310, end: 20141104

REACTIONS (5)
  - Vomiting [Unknown]
  - Obesity [Unknown]
  - Blindness [Unknown]
  - Gynaecomastia [Unknown]
  - Increased appetite [Unknown]

NARRATIVE: CASE EVENT DATE: 2005
